FAERS Safety Report 11231775 (Version 1)
Quarter: 2015Q2

REPORT INFORMATION
  Report Type: Spontaneous
  Country: US (occurrence: None)
  Receive Date: 20150630
  Receipt Date: 20150630
  Transmission Date: 20150821
  Serious: Yes (Other)
  Sender: FDA-Public Use
  Company Number: None

PATIENT
  Age: 62 Year
  Sex: Female

DRUGS (2)
  1. EXEMESTANE 25 MG GREENSTONE [Suspect]
     Active Substance: EXEMESTANE
     Indication: BREAST CANCER
     Dosage: 1 TABLET, QD, PO?
     Route: 048
     Dates: start: 20140424
  2. AFINITOR [Suspect]
     Active Substance: EVEROLIMUS
     Indication: BREAST CANCER
     Dosage: 1 TABLET, QD, PO
     Route: 048
     Dates: start: 20140409

REACTIONS (2)
  - Stomatitis [None]
  - Therapy cessation [None]

NARRATIVE: CASE EVENT DATE: 201506
